FAERS Safety Report 7045849-4 (Version None)
Quarter: 2010Q4

REPORT INFORMATION
  Report Type: 
  Country: None (occurrence: None)
  Receive Date: 20101014
  Receipt Date: 20100922
  Transmission Date: 20110411
  Serious: Yes (Other)
  Sender: FDA-Public Use
  Company Number: PHHY2010DE62717

PATIENT
  Sex: Male
  Weight: 85 kg

DRUGS (7)
  1. RASILEZ [Suspect]
     Dosage: 150 MG, DAILY
     Route: 048
     Dates: start: 20100913, end: 20100917
  2. AMIODARONE HCL [Concomitant]
     Dosage: 400MG/DAY, UNK
     Route: 048
     Dates: start: 20010101
  3. DIGIMERCK [Concomitant]
     Dosage: 0.05 MG/DAY, UNK
     Route: 048
     Dates: start: 20020201
  4. BISOPROLOL [Concomitant]
     Dosage: 5 MG, DAILY
     Route: 048
     Dates: start: 20020201
  5. SPIRONOLACTONE [Concomitant]
     Dosage: 50 MG, DAILY
     Route: 048
     Dates: start: 20020201
  6. TORASEMIDE [Concomitant]
     Dosage: 5 MG, DAILY
     Route: 048
     Dates: start: 20080101
  7. TAMBOCOR [Concomitant]
     Dosage: 150 MG, DAILY
     Route: 048
     Dates: start: 20100913, end: 20100918

REACTIONS (4)
  - BLOOD CREATININE INCREASED [None]
  - GLOMERULAR FILTRATION RATE DECREASED [None]
  - RESPIRATORY DISORDER [None]
  - SLEEP DISORDER [None]
